FAERS Safety Report 19211414 (Version 1)
Quarter: 2021Q2

REPORT INFORMATION
  Report Type: Report from Study
  Country: ES (occurrence: ES)
  Receive Date: 20210504
  Receipt Date: 20210504
  Transmission Date: 20210717
  Serious: Yes (Other)
  Sender: FDA-Public Use
  Company Number: ES-SUN PHARMACEUTICAL INDUSTRIES LTD-2021R1-293995

PATIENT
  Age: 64 Year
  Sex: Male

DRUGS (1)
  1. PREDNISONE. [Suspect]
     Active Substance: PREDNISONE
     Indication: INCLUSION BODY MYOSITIS
     Dosage: 5 MILLIGRAM, DAILY
     Route: 065

REACTIONS (1)
  - Varicella zoster virus infection [Unknown]
